FAERS Safety Report 9870569 (Version 3)
Quarter: 2020Q3

REPORT INFORMATION
  Report Type: Report from Study
  Country: ES (occurrence: ES)
  Receive Date: 20140205
  Receipt Date: 20140708
  Transmission Date: 20201104
  Serious: Yes (Hospitalization)
  Sender: FDA-Public Use
  Company Number: PHHY2014ES013209

PATIENT
  Age: 66 Year
  Sex: Female

DRUGS (15)
  1. 5?FLUOROURACIL [Suspect]
     Active Substance: FLUOROURACIL
     Route: 040
     Dates: start: 20131017
  2. NOLOTIL (METAMIZOLE MAGNESIUM) [Concomitant]
     Active Substance: METAMIZOLE MAGNESIUM
     Indication: PAIN
     Dosage: 1 DF, UNK
     Route: 048
  3. AZITROMICINA [Concomitant]
     Active Substance: AZITHROMYCIN DIHYDRATE
     Indication: DIARRHOEA
     Dosage: 500 MG, UNK
     Route: 048
     Dates: start: 20131210, end: 20131212
  4. OMEPRAZOLE. [Concomitant]
     Active Substance: OMEPRAZOLE
     Indication: DYSPEPSIA
     Dosage: 20 MG, UNK
     Route: 048
  5. FERBISOL [Concomitant]
     Indication: BLOOD IRON DECREASED
     Dosage: 1 DF, UNK
     Route: 048
  6. MAGNESIOBOI [Concomitant]
     Indication: HYPOMAGNESAEMIA
     Dosage: 3 DF, UNK
     Route: 048
     Dates: start: 20131220, end: 20140327
  7. OXALIPLATIN. [Suspect]
     Active Substance: OXALIPLATIN
     Indication: GASTROOESOPHAGEAL CANCER
     Dosage: 86.71 MG, BIW
     Route: 042
     Dates: start: 20131017, end: 20131128
  8. FOLINIC ACID [Suspect]
     Active Substance: LEUCOVORIN
     Indication: GASTROOESOPHAGEAL CANCER
     Dosage: 533.6 MG, BIW
     Route: 042
     Dates: start: 20131017, end: 20131128
  9. ONARTUZUMAB. [Suspect]
     Active Substance: ONARTUZUMAB
     Indication: GASTROOESOPHAGEAL CANCER
     Route: 042
     Dates: start: 20131017, end: 20131128
  10. TAZOCEL [Concomitant]
     Active Substance: PIPERACILLIN SODIUM\TAZOBACTAM SODIUM
     Indication: NEUTROPENIA
     Dosage: 4 G, UNK
     Dates: start: 20131212, end: 20131216
  11. 5?FLUOROURACIL [Suspect]
     Active Substance: FLUOROURACIL
     Indication: GASTROOESOPHAGEAL CANCER
     Dosage: 3201.6 MG, BIW
     Route: 041
     Dates: start: 20131017, end: 20131128
  12. FERBISOL [Concomitant]
     Indication: PROPHYLAXIS
  13. WHOLE BLOOD ACD [Concomitant]
     Indication: ANAEMIA
     Dosage: 2 DF, UNK
     Route: 042
     Dates: start: 20131215, end: 20131215
  14. NEUPOGEN [Concomitant]
     Active Substance: FILGRASTIM
     Indication: NEUTROPENIA
     Dosage: 1 DF, UNK
     Route: 042
     Dates: start: 20131212, end: 20131212
  15. FORTASEC [Concomitant]
     Active Substance: LOPERAMIDE HYDROCHLORIDE
     Indication: DIARRHOEA
     Dosage: 1 DF, UNK
     Route: 048
     Dates: start: 20131213

REACTIONS (1)
  - Hypokalaemia [Recovered/Resolved]

NARRATIVE: CASE EVENT DATE: 20131210
